FAERS Safety Report 8886613 (Version 2)
Quarter: 2012Q4

REPORT INFORMATION
  Report Type: 
  Country: AR (occurrence: AR)
  Receive Date: 20121105
  Receipt Date: 20121211
  Transmission Date: 20130627
  Serious: Yes (Hospitalization)
  Sender: FDA-Public Use
  Company Number: PHHY2012AR098256

PATIENT
  Sex: Male

DRUGS (1)
  1. ONBREZ [Suspect]
     Indication: CHRONIC OBSTRUCTIVE PULMONARY DISEASE
     Dosage: 1 DF, QD

REACTIONS (5)
  - Septic shock [Recovered/Resolved]
  - Hypoxia [Recovered/Resolved]
  - Pneumonia [Recovered/Resolved]
  - Back pain [Recovered/Resolved]
  - Abasia [Recovered/Resolved]
